FAERS Safety Report 15335348 (Version 1)
Quarter: 2018Q3

REPORT INFORMATION
  Report Type: Spontaneous
  Country: ZA (occurrence: ZA)
  Receive Date: 20180830
  Receipt Date: 20180830
  Transmission Date: 20181010
  Serious: Yes (Hospitalization)
  Sender: FDA-Public Use
  Company Number: PHHY2018ZA078991

PATIENT
  Age: 63 Year
  Sex: Male

DRUGS (1)
  1. BISOHEXAL [Suspect]
     Active Substance: BISOPROLOL FUMARATE
     Indication: HYPERTENSION
     Dosage: 10 MG, UNK
     Route: 048
     Dates: start: 201803

REACTIONS (3)
  - Pulmonary oedema [Unknown]
  - Hypotension [Unknown]
  - Blood glucose increased [Unknown]
